FAERS Safety Report 25522132 (Version 2)
Quarter: 2025Q3

REPORT INFORMATION
  Report Type: Report from Study
  Country: CO (occurrence: CO)
  Receive Date: 20250707
  Receipt Date: 20250807
  Transmission Date: 20251020
  Serious: Yes (Other)
  Sender: TAKEDA
  Company Number: CO-TAKEDA-2025TUS060416

PATIENT
  Age: 40 Year
  Sex: Male

DRUGS (3)
  1. ADVATE [Suspect]
     Active Substance: ANTIHEMOPHILIC FACTOR, HUMAN RECOMBINANT
     Indication: Factor VIII deficiency
  2. ADVATE [Suspect]
     Active Substance: ANTIHEMOPHILIC FACTOR, HUMAN RECOMBINANT
  3. ADVATE [Suspect]
     Active Substance: ANTIHEMOPHILIC FACTOR, HUMAN RECOMBINANT

REACTIONS (9)
  - Haematochezia [Unknown]
  - Haematuria [Unknown]
  - Arthritis [Recovering/Resolving]
  - Haemorrhoids [Recovering/Resolving]
  - Burning sensation [Unknown]
  - Feeling hot [Unknown]
  - Pain [Unknown]
  - Back pain [Unknown]
  - Dysuria [Unknown]

NARRATIVE: CASE EVENT DATE: 20250501
